FAERS Safety Report 10142878 (Version 2)
Quarter: 2014Q3

REPORT INFORMATION
  Report Type: Spontaneous
  Country: US (occurrence: None)
  Receive Date: 20140428
  Receipt Date: 20140926
  Transmission Date: 20150326
  Serious: Yes (Death)
  Sender: FDA-Public Use
  Company Number: 1713747-2014-99952

PATIENT
  Sex: Male

DRUGS (4)
  1. DELFLEX [Suspect]
     Active Substance: CALCIUM CHLORIDE\DEXTROSE MONOHYDRATE\MAGNESIUM CHLORIDE\SODIUM CHLORIDE\SODIUM LACTATE
     Indication: PERITONEAL DIALYSIS
     Dosage: PERITONEAL DIALYSIS
     Dates: start: 201403
  2. DELFLEX [Suspect]
     Active Substance: CALCIUM CHLORIDE\DEXTROSE MONOHYDRATE\MAGNESIUM CHLORIDE\SODIUM CHLORIDE\SODIUM LACTATE
     Indication: RENAL FAILURE CHRONIC
     Dosage: PERITONEAL DIALYSIS
     Dates: start: 201403
  3. LIBERTY TUBING [Concomitant]
  4. CYCLER [Concomitant]

REACTIONS (2)
  - Device issue [None]
  - Death [None]

NARRATIVE: CASE EVENT DATE: 201403
